FAERS Safety Report 5322095-3 (Version None)
Quarter: 2007Q2

REPORT INFORMATION
  Report Type: 
  Country: None (occurrence: None)
  Receive Date: 20070222
  Receipt Date: 20060522
  Transmission Date: 20071010
  Serious: Yes (Hospitalization)
  Sender: FDA-Public Use
  Company Number: HQWYE449522MAY06

PATIENT
  Age: 52 Year
  Sex: Male

DRUGS (3)
  1. EFFEXOR [Suspect]
     Dates: start: 20060127
  2. PAXIL [Suspect]
     Indication: GENERALISED ANXIETY DISORDER
     Dosage: 'AT NIGHT^; ORAL
     Route: 048
     Dates: start: 20051201
  3. PROZAC [Suspect]
     Indication: DEPRESSION
     Dates: end: 20060126

REACTIONS (1)
  - SUICIDE ATTEMPT [None]
